FAERS Safety Report 7600003-X (Version None)
Quarter: 2011Q3

REPORT INFORMATION
  Report Type: 
  Country: None (occurrence: None)
  Receive Date: 20110711
  Receipt Date: 20110628
  Transmission Date: 20111222
  Serious: Yes (Hospitalization)
  Sender: FDA-Public Use
  Company Number: JP-JNJFOC-20110610943

PATIENT
  Age: 79 Year
  Sex: Female
  Weight: 49 kg

DRUGS (13)
  1. VERAPAMIL HCL [Concomitant]
     Route: 048
  2. FUROSEMIDE [Concomitant]
     Indication: CARDIAC FAILURE
     Route: 048
  3. HEAVY MAGNESIUM OXIDE [Concomitant]
     Route: 048
  4. DONEPEZIL HYDROCHLORIDE [Suspect]
     Indication: PRODUCT USED FOR UNKNOWN INDICATION
     Route: 065
  5. BROTIZOLAM [Concomitant]
     Route: 048
  6. KAMAG G [Concomitant]
     Indication: CONSTIPATION
     Route: 048
  7. GALANTAMINE HYDROBROMIDE [Suspect]
     Indication: PRODUCT USED FOR UNKNOWN INDICATION
     Route: 048
     Dates: start: 20110602, end: 20110615
  8. ENALAPRIL MALEATE [Concomitant]
     Indication: CARDIAC FAILURE
     Route: 048
  9. CARVEDILOL [Concomitant]
     Indication: CARDIAC FAILURE
     Route: 048
  10. ALDACTONE [Concomitant]
     Indication: CARDIAC FAILURE
     Route: 048
  11. LANSOPRAZOLE [Concomitant]
     Indication: GASTRIC ULCER
     Route: 048
  12. NEUROTROPIN [Concomitant]
     Indication: ARTHRALGIA
     Route: 048
  13. RACOL [Concomitant]
     Route: 048

REACTIONS (1)
  - SUPRAVENTRICULAR TACHYCARDIA [None]
